FAERS Safety Report 26117026 (Version 1)
Quarter: 2025Q4

REPORT INFORMATION
  Report Type: Spontaneous
  Country: US (occurrence: None)
  Receive Date: 20251202
  Receipt Date: 20251202
  Transmission Date: 20260118
  Serious: Yes (Hospitalization, Other)
  Sender: FDA-CTU
  Company Number: None

PATIENT
  Age: 40 Year
  Sex: Female
  Weight: 90 kg

DRUGS (10)
  1. STERILE WATER FOR IRRIGATION [Suspect]
     Active Substance: WATER
     Indication: Sleep apnoea syndrome
     Dosage: RESPIRATORY (INHALATION)
     Route: 055
     Dates: start: 20251128, end: 20251202
  2. BUSPAR [Concomitant]
     Active Substance: BUSPIRONE HYDROCHLORIDE
  3. CYMBALTA [Concomitant]
     Active Substance: DULOXETINE HYDROCHLORIDE
  4. WAKIX [Concomitant]
     Active Substance: PITOLISANT HYDROCHLORIDE
  5. LUNESTA [Concomitant]
     Active Substance: ESZOPICLONE
  6. ALBUTEROL [Concomitant]
     Active Substance: ALBUTEROL
  7. PULMICORT TURBUHALER [Concomitant]
     Active Substance: BUDESONIDE
  8. FLONASE [Concomitant]
     Active Substance: FLUTICASONE PROPIONATE
  9. CLARITIN [Concomitant]
     Active Substance: LORATADINE
  10. FAMOTIDINE [Concomitant]
     Active Substance: FAMOTIDINE

REACTIONS (1)
  - Seizure like phenomena [None]

NARRATIVE: CASE EVENT DATE: 20251201
